FAERS Safety Report 21808714 (Version 2)
Quarter: 2023Q1

REPORT INFORMATION
  Report Type: Spontaneous
  Country: FR (occurrence: FR)
  Receive Date: 20230103
  Receipt Date: 20230120
  Transmission Date: 20230418
  Serious: Yes (Other)
  Sender: FDA-Public Use
  Company Number: None

PATIENT
  Age: 72 Year
  Sex: Female

DRUGS (1)
  1. TRASTUZUMAB [Suspect]
     Active Substance: TRASTUZUMAB
     Indication: Invasive ductal breast carcinoma
     Dosage: 220 MILLIGRAM, Q3WK
     Route: 040
     Dates: start: 201904, end: 20221028

REACTIONS (1)
  - Gastrointestinal vascular malformation haemorrhagic [Not Recovered/Not Resolved]

NARRATIVE: CASE EVENT DATE: 20210801
